FAERS Safety Report 5896024-8 (Version None)
Quarter: 2008Q3

REPORT INFORMATION
  Report Type: 
  Country: None (occurrence: None)
  Receive Date: 20080924
  Receipt Date: 20080915
  Transmission Date: 20090109
  Serious: Yes (Hospitalization, Other)
  Sender: FDA-Public Use
  Company Number: US-AMGEN-QUU307905

PATIENT
  Sex: Female

DRUGS (2)
  1. ENBREL [Suspect]
     Indication: PSORIATIC ARTHROPATHY
     Route: 058
     Dates: start: 20040708
  2. UNSPECIFIED ANTINEOPLASTIC AGENT [Concomitant]

REACTIONS (11)
  - ARTHRITIS [None]
  - ARTHROPOD BITE [None]
  - COLONIC POLYP [None]
  - HEPATITIS C [None]
  - HERNIA [None]
  - NEOPLASM MALIGNANT [None]
  - NEOPLASM PROGRESSION [None]
  - PROCEDURAL COMPLICATION [None]
  - PSORIASIS [None]
  - THROMBOSIS [None]
  - WHITE BLOOD CELL COUNT INCREASED [None]
